FAERS Safety Report 7576994-2 (Version None)
Quarter: 2011Q2

REPORT INFORMATION
  Report Type: 
  Country: None (occurrence: None)
  Receive Date: 20110628
  Receipt Date: 20110117
  Transmission Date: 20111010
  Serious: Yes (Hospitalization)
  Sender: FDA-Public Use
  Company Number: US-BAYER-201034629NA

PATIENT
  Age: 22 Year
  Sex: Female
  Weight: 150.57 kg

DRUGS (20)
  1. YAZ [Suspect]
     Indication: PRODUCT USED FOR UNKNOWN INDICATION
     Dosage: UNK UNK, UNK
     Route: 048
     Dates: start: 20051101, end: 20060113
  2. PHENTERMINE [Concomitant]
  3. PROTONIX [Concomitant]
  4. PROMETHAZINE [Concomitant]
     Dosage: 25 MG, UNK
  5. RANITIDINE [Concomitant]
     Dosage: 150 MG, UNK
  6. ALPRAZOLAM [Concomitant]
  7. FLUOXETINE HCL [Concomitant]
     Dosage: 20 MG, UNK
  8. LORATADINE [Concomitant]
     Dosage: 10 MG, UNK
  9. ERYTHROMYCIN [Concomitant]
     Dosage: 400 MG, UNK
  10. VIOXX [Concomitant]
     Dosage: 25 MG, UNK
  11. HYDRO/ ACETA [Concomitant]
  12. IBUPROFEN [Concomitant]
     Dosage: 800 MG, UNK
  13. YASMIN [Suspect]
     Indication: PRODUCT USED FOR UNKNOWN INDICATION
     Route: 048
  14. METRONIDAZOLE [Concomitant]
     Dosage: 250 MG, UNK
  15. CEPHALEXIN [Concomitant]
     Dosage: 500 MG, UNK
  16. FLUCONAZOLE [Concomitant]
     Dosage: 150 MG, UNK
  17. DIAZEPAM [Concomitant]
  18. SULFATRIM [SULFAMETHOXAZOLE,TRIMETHOPRIM] [Concomitant]
  19. CITALOPRAM HYDROBROMIDE [Concomitant]
     Dosage: 40 MG, UNK
  20. CELEXA [Concomitant]

REACTIONS (3)
  - ABDOMINAL PAIN UPPER [None]
  - BILIARY DYSKINESIA [None]
  - CHOLECYSTITIS CHRONIC [None]
